FAERS Safety Report 9281486 (Version 1)
Quarter: 2013Q2

REPORT INFORMATION
  Report Type: Spontaneous
  Country: JP (occurrence: JP)
  Receive Date: 20130509
  Receipt Date: 20130509
  Transmission Date: 20140414
  Serious: Yes (Hospitalization)
  Sender: FDA-Public Use
  Company Number: JP-ROXANE LABORATORIES, INC.-2013-RO-00697RO

PATIENT
  Age: 66 Year
  Sex: Female

DRUGS (4)
  1. CALCITRIOL [Suspect]
     Indication: RHEUMATOID ARTHRITIS
     Dosage: 0.5 MCG
  2. BUCILLAMINE [Suspect]
     Indication: RHEUMATOID ARTHRITIS
     Dosage: 200 MG
  3. PREDNISOLONE [Suspect]
     Indication: RHEUMATOID ARTHRITIS
     Dosage: 5 MG
  4. RISEDRONATE [Suspect]
     Indication: RHEUMATOID ARTHRITIS

REACTIONS (2)
  - Chondrocalcinosis pyrophosphate [Recovered/Resolved]
  - Hypercalcaemia [Recovered/Resolved]
